FAERS Safety Report 11425186 (Version 2)
Quarter: 2015Q4

REPORT INFORMATION
  Report Type: Report from Study
  Country: JP (occurrence: JP)
  Receive Date: 20150827
  Receipt Date: 20151002
  Transmission Date: 20160304
  Serious: Yes (Hospitalization)
  Sender: FDA-Public Use
  Company Number: JP-EISAI MEDICAL RESEARCH-EC-2015-009952

PATIENT
  Age: 91 Year
  Sex: Female

DRUGS (5)
  1. BLOPRESS [Concomitant]
     Active Substance: CANDESARTAN CILEXETIL
  2. MOBIC [Concomitant]
     Active Substance: MELOXICAM
  3. ARICEPT [Suspect]
     Active Substance: DONEPEZIL HYDROCHLORIDE
     Indication: DEMENTIA ALZHEIMER^S TYPE
     Route: 048
     Dates: start: 20140326, end: 20140405
  4. MYONAL [Concomitant]
     Active Substance: EPERISONE HYDROCHLORIDE
  5. SUMILU STICK [Concomitant]

REACTIONS (2)
  - Gastrointestinal haemorrhage [Recovered/Resolved]
  - Gastric ulcer [Recovered/Resolved]

NARRATIVE: CASE EVENT DATE: 20140405
